FAERS Safety Report 7557856-3 (Version None)
Quarter: 2011Q2

REPORT INFORMATION
  Report Type: 
  Country: None (occurrence: None)
  Receive Date: 20110620
  Receipt Date: 20110610
  Transmission Date: 20111010
  Serious: Yes (Other)
  Sender: FDA-Public Use
  Company Number: CHPA2011US08081

PATIENT
  Age: 65 Year
  Sex: Female
  Weight: 76.19 kg

DRUGS (2)
  1. PREVACID 24 HR [Suspect]
     Dosage: 30 MG, QD
     Route: 048
  2. PREVACID 24 HR [Suspect]
     Indication: GASTRIC PH DECREASED
     Dosage: 60 MG, QD
     Route: 048
     Dates: start: 20110609

REACTIONS (4)
  - OFF LABEL USE [None]
  - INCORRECT DRUG ADMINISTRATION DURATION [None]
  - ULCER [None]
  - OVERDOSE [None]
